FAERS Safety Report 5628757-2 (Version None)
Quarter: 2008Q1

REPORT INFORMATION
  Report Type: 
  Country: None (occurrence: None)
  Receive Date: 20080215
  Receipt Date: 20080207
  Transmission Date: 20080703
  Serious: Yes (Other)
  Sender: FDA-Public Use
  Company Number: CA-PFIZER INC-2008012582

PATIENT
  Age: 25 Year
  Sex: Female

DRUGS (5)
  1. CHANTIX [Suspect]
     Dosage: DAILY DOSE:1MG
     Route: 048
  2. EFFEXOR [Concomitant]
     Route: 048
  3. CELEXA [Concomitant]
     Route: 048
  4. FLUCONAZOLE [Concomitant]
     Route: 048
  5. CIPROFLOXACIN [Concomitant]
     Route: 048

REACTIONS (3)
  - EYE PAIN [None]
  - LOSS OF CONSCIOUSNESS [None]
  - VISUAL DISTURBANCE [None]
